FAERS Safety Report 17324349 (Version 1)
Quarter: 2020Q1

REPORT INFORMATION
  Report Type: Spontaneous
  Country: US (occurrence: US)
  Receive Date: 20200124
  Receipt Date: 20200124
  Transmission Date: 20200409
  Serious: Yes (Life-Threatening, Hospitalization, Disabling)
  Sender: FDA-Public Use
  Company Number: None

PATIENT
  Sex: Female
  Weight: 60.75 kg

DRUGS (1)
  1. OMEPRAZOLE. [Suspect]
     Active Substance: OMEPRAZOLE
     Indication: GASTROOESOPHAGEAL REFLUX DISEASE
     Route: 048

REACTIONS (8)
  - Abdominal pain [None]
  - Malnutrition [None]
  - Blood potassium decreased [None]
  - Blood creatine abnormal [None]
  - Anal incontinence [None]
  - Oral mucosal exfoliation [None]
  - Loss of consciousness [None]
  - Blood urea abnormal [None]
